FAERS Safety Report 8850436 (Version 6)
Quarter: 2013Q1

REPORT INFORMATION
  Report Type: Spontaneous
  Country: AT (occurrence: AT)
  Receive Date: 20121019
  Receipt Date: 20130204
  Transmission Date: 20140127
  Serious: Yes (Other)
  Sender: FDA-Public Use
  Company Number: AT-BAXTER-2012BAX019792

PATIENT
  Age: 3 Year
  Sex: Male
  Weight: 19.5 kg

DRUGS (16)
  1. ADVATE [Suspect]
     Indication: FACTOR VIII DEFICIENCY
     Route: 065
     Dates: start: 20120522, end: 20120612
  2. ADVATE [Suspect]
     Indication: IMMUNE TOLERANCE INDUCTION
     Dosage: 2X100 IU/KG/BW
     Route: 065
     Dates: start: 20120119
  3. ADVATE [Suspect]
     Route: 042
     Dates: start: 20110624, end: 20110624
  4. ADVATE [Suspect]
     Route: 042
     Dates: start: 20110922, end: 20110922
  5. ADVATE [Suspect]
     Route: 042
     Dates: start: 20111123, end: 20111123
  6. ADVATE [Suspect]
     Route: 042
     Dates: start: 20120127, end: 20120127
  7. ADVATE [Suspect]
     Route: 042
     Dates: start: 20120228, end: 20120228
  8. ADVATE [Suspect]
     Route: 042
     Dates: start: 20120229, end: 20120229
  9. ADVATE [Suspect]
     Route: 042
     Dates: start: 20120411, end: 20120411
  10. ADVATE [Suspect]
     Route: 042
     Dates: start: 20120508, end: 20120508
  11. ADVATE [Suspect]
     Route: 042
     Dates: start: 20120522, end: 20120522
  12. RFVIIA [Suspect]
     Indication: FACTOR VIII DEFICIENCY
     Route: 065
  13. RFVIII [Suspect]
     Indication: FACTOR VIII DEFICIENCY
     Dosage: 25 IE/KGBW
     Route: 065
  14. RFVIII [Suspect]
     Dosage: 25 IE/KGBW
     Route: 065
  15. RFVIII [Suspect]
     Dosage: 100 IE/KGBW
     Route: 065
  16. RFVIII [Suspect]
     Dosage: 100 IE/KGBW
     Route: 065

REACTIONS (3)
  - Factor VIII inhibition [Recovering/Resolving]
  - Device related infection [Recovered/Resolved]
  - Bacteraemia [Recovered/Resolved]
